FAERS Safety Report 18433705 (Version 2)
Quarter: 2025Q3

REPORT INFORMATION
  Report Type: Report from Study
  Country: BR (occurrence: BR)
  Receive Date: 20201027
  Receipt Date: 20250702
  Transmission Date: 20251020
  Serious: Yes (Hospitalization, Other)
  Sender: NOVARTIS
  Company Number: BR-NOVARTISPH-NVSC2020BR287242

PATIENT
  Age: 53 Year
  Sex: Female

DRUGS (1)
  1. ENTRESTO [Suspect]
     Active Substance: SACUBITRIL\VALSARTAN
     Indication: Cardiac failure
     Dosage: 50 MG, BID (EVERY 12 HOURS) (5 MONTHS AGO)
     Route: 065

REACTIONS (13)
  - Pulmonary oedema [Recovered/Resolved]
  - Cough [Unknown]
  - Cerebrovascular accident [Recovering/Resolving]
  - Myocarditis [Recovering/Resolving]
  - Spinal cord compression [Not Recovered/Not Resolved]
  - Angina pectoris [Recovering/Resolving]
  - Poor quality sleep [Unknown]
  - Heart rate increased [Recovering/Resolving]
  - Inflammation [Not Recovered/Not Resolved]
  - Nodule [Recovering/Resolving]
  - Dyspepsia [Recovering/Resolving]
  - Burning sensation [Recovering/Resolving]
  - Fatigue [Recovering/Resolving]

NARRATIVE: CASE EVENT DATE: 20200501
